FAERS Safety Report 7417432-X (Version None)
Quarter: 2011Q2

REPORT INFORMATION
  Report Type: 
  Country: None (occurrence: None)
  Receive Date: 20110415
  Receipt Date: 20110330
  Transmission Date: 20111010
  Serious: Yes (Death, Other)
  Sender: FDA-Public Use
  Company Number: US-PFIZER INC-US-WYE-H07163908

PATIENT
  Age: 58 Year
  Sex: Male
  Weight: 90.7 kg

DRUGS (5)
  1. ALLEGRA [Concomitant]
     Route: 048
  2. BEXTRA [Suspect]
     Indication: ARTHRITIS
     Dosage: 10.0 MG, 2X/DAY
     Route: 048
     Dates: end: 20050401
  3. NORVASC [Suspect]
     Indication: HYPERTENSION
     Dosage: 5.0 MG, 1X/DAY
     Route: 048
  4. ADVIL LIQUI-GELS [Suspect]
     Indication: ARTHRITIS
     Route: 048
  5. ARTHROTEC [Suspect]
     Indication: ARTHRITIS
     Route: 048

REACTIONS (6)
  - CORONARY ARTERY OCCLUSION [None]
  - CORONARY ARTERY DISEASE [None]
  - MYOCARDIAL INFARCTION [None]
  - WHEEZING [None]
  - IRRITABLE BOWEL SYNDROME [None]
  - HYPONATRAEMIA [None]
